FAERS Safety Report 5467768-7 (Version None)
Quarter: 2007Q3

REPORT INFORMATION
  Report Type: 
  Country: None (occurrence: None)
  Receive Date: 20070926
  Receipt Date: 20070919
  Transmission Date: 20080115
  Serious: Yes (Other)
  Sender: FDA-Public Use
  Company Number: PHBS2007JP14682

PATIENT
  Age: 55 Year
  Sex: Female
  Weight: 45 kg

DRUGS (12)
  1. CARBIDOPA AND LEVODOPA [Suspect]
     Indication: PARKINSON'S DISEASE
     Dosage: 500 MG, QID
     Dates: start: 19960321
  2. PARLODEL [Suspect]
     Indication: PARKINSON'S DISEASE
     Dosage: 7.5 MG, TID
     Route: 048
     Dates: start: 19951219, end: 20050314
  3. PARLODEL [Suspect]
     Dosage: 22.5 MG/DAY
     Route: 048
     Dates: start: 20051101, end: 20051128
  4. PARLODEL [Suspect]
     Dosage: 22.5 MG/DAY
     Route: 048
     Dates: start: 20051220, end: 20060501
  5. PRAMIVERINE HYDROCHLORIDE [Suspect]
     Indication: PARKINSON'S DISEASE
     Dosage: 1.5 MG, TID
     Dates: start: 20050314, end: 20051020
  6. FP [Suspect]
     Indication: PARKINSON'S DISEASE
     Dosage: 2.5 MG/DAY
     Dates: start: 20030306, end: 20051228
  7. NORITREN [Concomitant]
     Indication: DEPRESSION
     Dosage: 20 MG, UNK
     Dates: start: 19961106
  8. CLONAZEPAM [Concomitant]
     Indication: DEPRESSION
     Dosage: 0.5 MG, UNK
     Dates: start: 19960306
  9. AKINETON [Concomitant]
     Indication: PARKINSON'S DISEASE
     Dosage: 2 MG, UNK
     Dates: start: 20030922, end: 20051228
  10. NAUZELIN [Concomitant]
     Indication: NAUSEA
     Dosage: 40 MG, UNK
     Dates: start: 19951226
  11. LOXONIN [Concomitant]
     Indication: HEADACHE
     Dosage: 180 MG, UNK
  12. YODEL [Concomitant]
     Indication: CONSTIPATION
     Dosage: 160 MG, UNK
     Dates: start: 19960410

REACTIONS (7)
  - CONDITION AGGRAVATED [None]
  - DRUG EFFECT DECREASED [None]
  - DYSKINESIA [None]
  - DYSTONIA [None]
  - HALLUCINATION, AUDITORY [None]
  - HALLUCINATION, VISUAL [None]
  - PERSECUTORY DELUSION [None]
